FAERS Safety Report 7754964-9 (Version None)
Quarter: 2011Q3

REPORT INFORMATION
  Report Type: 
  Country: None (occurrence: None)
  Receive Date: 20110916
  Receipt Date: 20110909
  Transmission Date: 20111222
  Serious: No
  Sender: FDA-Public Use
  Company Number: US-BIOGENIDEC-2011BI035005

PATIENT
  Age: 49 Year
  Sex: Male

DRUGS (3)
  1. CITALOPRAM HYDROBROMIDE [Concomitant]
     Indication: ANXIETY
     Dates: start: 20110820
  2. TYSABRI [Suspect]
     Indication: MULTIPLE SCLEROSIS
     Route: 042
     Dates: start: 20110805
  3. ANTIANXIETY MEDICATION (NOS) [Concomitant]
     Indication: ANXIETY
     Dates: end: 20110820

REACTIONS (2)
  - TREMOR [None]
  - BACK PAIN [None]
